FAERS Safety Report 12520771 (Version 1)
Quarter: 2016Q2

REPORT INFORMATION
  Report Type: Spontaneous
  Country: US (occurrence: None)
  Receive Date: 20160630
  Receipt Date: 20160630
  Transmission Date: 20160815
  Serious: No
  Sender: FDA-Public Use
  Company Number: None

PATIENT
  Age: 49 Year
  Sex: Male

DRUGS (8)
  1. SUMATRIPTAN. [Concomitant]
     Active Substance: SUMATRIPTAN
  2. LISINOPRIL. [Concomitant]
     Active Substance: LISINOPRIL
  3. OMEPRAZOLE. [Concomitant]
     Active Substance: OMEPRAZOLE
  4. CIALIS [Concomitant]
     Active Substance: TADALAFIL
  5. SUTENT [Suspect]
     Active Substance: SUNITINIB MALATE
     Indication: NEOPLASM MALIGNANT
     Route: 048
     Dates: start: 20160513
  6. IRON [Concomitant]
     Active Substance: IRON
  7. CETIRIZINE [Concomitant]
     Active Substance: CETIRIZINE HYDROCHLORIDE
  8. FERROUS SULF. [Concomitant]

REACTIONS (5)
  - Dry skin [None]
  - Stomatitis [None]
  - Blood pressure increased [None]
  - Pyrexia [None]
  - Therapy change [None]

NARRATIVE: CASE EVENT DATE: 201605
